FAERS Safety Report 26082250 (Version 3)
Quarter: 2025Q4

REPORT INFORMATION
  Report Type: Spontaneous
  Country: GB (occurrence: GB)
  Receive Date: 20251124
  Receipt Date: 20251211
  Transmission Date: 20260117
  Serious: Yes (Other)
  Sender: AMGEN
  Company Number: GB-AMGEN-GBRSP2025228792

PATIENT
  Age: 31 Year
  Sex: Male

DRUGS (2)
  1. ARANESP [Suspect]
     Active Substance: DARBEPOETIN ALFA
     Indication: Haemoglobin decreased
     Dosage: 200 MICROGRAM, Q2WK
     Route: 058
     Dates: start: 20250123
  2. ARANESP [Suspect]
     Active Substance: DARBEPOETIN ALFA
     Indication: Nephrogenic anaemia

REACTIONS (1)
  - Haemoglobin decreased [Not Recovered/Not Resolved]
